FAERS Safety Report 6261116-0 (Version None)
Quarter: 2009Q3

REPORT INFORMATION
  Report Type: 
  Country: None (occurrence: None)
  Receive Date: 20090709
  Receipt Date: 20090107
  Transmission Date: 20100115
  Serious: No
  Sender: FDA-Public Use
  Company Number: US-KINGPHARMUSA00001-K200900010

PATIENT
  Sex: Female

DRUGS (2)
  1. LEVOXYL [Suspect]
     Dosage: 150 ^MG,^ UNK
     Dates: start: 20010101
  2. LEVOXYL [Suspect]
     Dosage: 112 ^MG,^ UNK

REACTIONS (4)
  - DIPLOPIA [None]
  - EYE SWELLING [None]
  - NAUSEA [None]
  - VISION BLURRED [None]
